FAERS Safety Report 6016385-9 (Version None)
Quarter: 2008Q4

REPORT INFORMATION
  Report Type: 
  Country: None (occurrence: None)
  Receive Date: 20081222
  Receipt Date: 20081212
  Transmission Date: 20090506
  Serious: Yes (Hospitalization)
  Sender: FDA-Public Use
  Company Number: JP-ABBOTT-08P-087-0489166-00

PATIENT
  Sex: Male
  Weight: 64 kg

DRUGS (7)
  1. HUMIRA [Suspect]
     Indication: PSORIASIS
     Route: 058
     Dates: start: 20061006, end: 20081107
  2. HUMIRA [Suspect]
     Route: 058
     Dates: start: 20081205, end: 20081205
  3. CORTICOSTEROIDS [Concomitant]
     Indication: PSORIASIS
  4. VITAMIN D AND ANALOGUES [Concomitant]
     Indication: PSORIASIS
  5. LOSARTAN POTASSIUM [Concomitant]
     Indication: HYPERTENSION
     Dates: start: 20040130
  6. NIFLEC [Concomitant]
     Indication: DRUG USE FOR UNKNOWN INDICATION
     Dates: start: 20080901
  7. SODIUM PICOSULFATE [Concomitant]
     Indication: DRUG USE FOR UNKNOWN INDICATION
     Dates: start: 20080901

REACTIONS (1)
  - ADENOCARCINOMA [None]
